FAERS Safety Report 13619701 (Version 1)
Quarter: 2017Q2

REPORT INFORMATION
  Report Type: Spontaneous
  Country: DK (occurrence: DK)
  Receive Date: 20170606
  Receipt Date: 20170606
  Transmission Date: 20170830
  Serious: Yes (Other)
  Sender: FDA-Public Use
  Company Number: DK-BAUSCH-BL-2017-018238

PATIENT
  Age: 53 Year
  Sex: Male

DRUGS (1)
  1. DILTIAZEM HYDROCHLORIDE 2% [Suspect]
     Active Substance: DILTIAZEM HYDROCHLORIDE
     Indication: ANAL FISSURE
     Route: 061

REACTIONS (1)
  - Dermatitis allergic [Recovered/Resolved]
